FAERS Safety Report 9120789 (Version 1)
Quarter: 2013Q1

REPORT INFORMATION
  Report Type: Spontaneous
  Country: US (occurrence: US)
  Receive Date: 20130226
  Receipt Date: 20130226
  Transmission Date: 20140127
  Serious: Yes (Other)
  Sender: FDA-Public Use
  Company Number: US-MYLANLABS-2013S1003242

PATIENT
  Age: 10 Year
  Sex: Male

DRUGS (8)
  1. METHADONE [Suspect]
     Indication: PAIN
     Dosage: 0.3MG/KG/DAY
     Route: 065
  2. LORAZEPAM [Concomitant]
     Indication: ANXIETY
     Route: 065
  3. METHYLPREDNISOLONE [Concomitant]
     Indication: GRAFT VERSUS HOST DISEASE
     Route: 065
  4. QUETIAPINE [Concomitant]
     Indication: ABNORMAL BEHAVIOUR
     Route: 065
  5. MELATONIN [Concomitant]
     Route: 065
  6. GABAPENTIN [Concomitant]
     Indication: PAIN
     Route: 065
  7. CLONIDINE [Concomitant]
     Indication: HYPERTENSION
     Route: 065
  8. NALOXONE [Concomitant]
     Route: 065

REACTIONS (2)
  - Sleep apnoea syndrome [Recovering/Resolving]
  - Hypoxia [Unknown]
